FAERS Safety Report 7055625-4 (Version None)
Quarter: 2010Q4

REPORT INFORMATION
  Report Type: 
  Country: None (occurrence: None)
  Receive Date: 20101021
  Receipt Date: 20101013
  Transmission Date: 20110411
  Serious: Yes (Hospitalization, Other)
  Sender: FDA-Public Use
  Company Number: FR-NOVOPROD-310912

PATIENT
  Age: 64 Year
  Sex: Male

DRUGS (14)
  1. VICTOZA [Suspect]
     Indication: TYPE 2 DIABETES MELLITUS
     Dosage: 0.6 MG, QD
     Route: 058
     Dates: start: 20100518, end: 20100604
  2. LISINOPRIL [Suspect]
     Indication: HYPERTENSION
     Dosage: 1 DF
     Dates: end: 20100604
  3. LEVEMIR [Concomitant]
     Indication: TYPE 2 DIABETES MELLITUS
     Dosage: 108 IU, QD
     Route: 058
     Dates: end: 20100604
  4. NOVORAPID [Concomitant]
     Indication: TYPE 2 DIABETES MELLITUS
     Dosage: 20 IU, TID
     Route: 058
     Dates: end: 20100604
  5. DIAMICRON [Concomitant]
     Indication: TYPE 2 DIABETES MELLITUS
     Dosage: 4 DF, QD
     Route: 048
     Dates: end: 20100604
  6. PLAVIX [Concomitant]
     Indication: CARDIOVASCULAR EVENT PROPHYLAXIS
     Dosage: 1 DF, QD
     Route: 048
     Dates: end: 20100604
  7. CARDENSIEL [Concomitant]
     Indication: HYPERTENSION
     Dosage: 1 DF, QD
     Route: 048
     Dates: end: 20100604
  8. CRESTOR [Concomitant]
     Indication: DYSLIPIDAEMIA
     Dosage: 1 DF, QD
     Route: 048
  9. DEROXAT [Concomitant]
     Dosage: 1 DF, QD
     Route: 048
  10. ZYPREXA [Concomitant]
     Dosage: 1 DF, QD
     Route: 048
  11. NOCTAMIDE [Concomitant]
     Dosage: 1 DF, QD
     Route: 048
  12. LYSANXIA [Concomitant]
     Dosage: 5 DF, QD
     Route: 048
     Dates: end: 20100604
  13. LEVOTHYROXINE SODIUM [Concomitant]
     Indication: HYPOTHYROIDISM
     Dosage: 1 DF, QD
     Route: 048
  14. MIANSERINE [Concomitant]
     Dosage: 1 DF, QD
     Route: 048
     Dates: end: 20100604

REACTIONS (5)
  - ASTHENIA [None]
  - DEHYDRATION [None]
  - DIARRHOEA [None]
  - RENAL FAILURE ACUTE [None]
  - VOMITING [None]
